FAERS Safety Report 6672057-9 (Version None)
Quarter: 2010Q2

REPORT INFORMATION
  Report Type: 
  Country: None (occurrence: None)
  Receive Date: 20100406
  Receipt Date: 20100326
  Transmission Date: 20101027
  Serious: Yes (Hospitalization)
  Sender: FDA-Public Use
  Company Number: 2010JP001874

PATIENT
  Age: 77 Year
  Sex: Female

DRUGS (6)
  1. VESICARE [Suspect]
     Indication: HYPERTONIC BLADDER
     Dosage: 5 MG, /D, ORAL
     Route: 048
     Dates: start: 20100303, end: 20100317
  2. VESICARE [Suspect]
     Indication: MICTURITION URGENCY
     Dosage: 5 MG, /D, ORAL
     Route: 048
     Dates: start: 20100303, end: 20100317
  3. LOSARTAN POTASSIUM AND HYDROCHLOROTHIAZIDE [Concomitant]
  4. LIPITOR [Concomitant]
  5. STOGAR (LAFUTIDINE) [Concomitant]
  6. SENNOSIDE (SENNOSIDE A+B) [Concomitant]

REACTIONS (1)
  - RENAL FAILURE ACUTE [None]
